FAERS Safety Report 8083626-6 (Version None)
Quarter: 2012Q1

REPORT INFORMATION
  Report Type: 
  Country: None (occurrence: None)
  Receive Date: 20120127
  Receipt Date: 20110127
  Transmission Date: 20120608
  Serious: No
  Sender: FDA-Public Use
  Company Number: US-ABBOTT-11P-163-0700991-00

PATIENT
  Age: 48 Year
  Sex: Male

DRUGS (7)
  1. HUMIRA [Suspect]
     Dates: end: 20090101
  2. SIMVASTATIN [Concomitant]
     Indication: BLOOD CHOLESTEROL INCREASED
  3. ASPIRIN [Concomitant]
     Indication: CARDIAC DISORDER
  4. CITALOPRAM [Concomitant]
     Indication: DEPRESSION
  5. FISH OIL [Concomitant]
     Indication: MEDICAL DIET
  6. HUMIRA [Suspect]
     Indication: PSORIATIC ARTHROPATHY
     Dates: start: 20101227
  7. QUINAPRIL [Concomitant]
     Indication: HYPERTENSION

REACTIONS (3)
  - MUSCULOSKELETAL STIFFNESS [None]
  - PAIN IN EXTREMITY [None]
  - RASH [None]
